FAERS Safety Report 10952017 (Version 3)
Quarter: 2015Q3

REPORT INFORMATION
  Report Type: Spontaneous
  Country: US (occurrence: None)
  Receive Date: 20150323
  Receipt Date: 20150806
  Transmission Date: 20151125
  Serious: Yes (Death, Life-Threatening, Hospitalization, Other)
  Sender: FDA-Public Use
  Company Number: ADR-2015-00562

PATIENT
  Age: 61 Year
  Sex: Male

DRUGS (9)
  1. TEMAZEPAM. [Suspect]
     Active Substance: TEMAZEPAM
  2. NORVASC [Suspect]
     Active Substance: AMLODIPINE BESYLATE
  3. MORPHINE [Suspect]
     Active Substance: MORPHINE
  4. SOMA [Suspect]
     Active Substance: CARISOPRODOL
  5. COLACE [Suspect]
     Active Substance: DOCUSATE SODIUM
  6. COMPOUNDED BACLOFEN INTRATHECAL 2000MCG/ML [Suspect]
     Active Substance: BACLOFEN
     Indication: MUSCLE SPASTICITY
  7. OXYCODONE [Suspect]
     Active Substance: OXYCODONE
  8. AMBIEN [Suspect]
     Active Substance: ZOLPIDEM TARTRATE
  9. ALBUTEROL. [Suspect]
     Active Substance: ALBUTEROL

REACTIONS (11)
  - Respiratory failure [None]
  - Respiratory arrest [None]
  - Device damage [None]
  - Loss of consciousness [None]
  - Septic shock [None]
  - Cardiac arrest [None]
  - Hepatic enzyme increased [None]
  - Lactic acidosis [None]
  - Bradycardia [None]
  - Brain injury [None]
  - Hyperkalaemia [None]

NARRATIVE: CASE EVENT DATE: 20150119
